FAERS Safety Report 7044957-1 (Version None)
Quarter: 2010Q4

REPORT INFORMATION
  Report Type: 
  Country: None (occurrence: None)
  Receive Date: 20101014
  Receipt Date: 20101005
  Transmission Date: 20110411
  Serious: Yes (Congenital Anomaly)
  Sender: FDA-Public Use
  Company Number: US-BRISTOL-MYERS SQUIBB COMPANY-15316110

PATIENT
  Sex: Female
  Weight: 3 kg

DRUGS (8)
  1. SUSTIVA [Suspect]
     Route: 064
     Dates: end: 20081116
  2. REYATAZ [Suspect]
     Route: 064
     Dates: start: 20081117, end: 20090711
  3. NORVIR [Suspect]
     Dosage: UNK TO 16NOV08 17NOV08 TO 11JUL09 (237D)
     Route: 064
     Dates: end: 20090711
  4. EMTRIVA [Suspect]
     Route: 064
  5. TRUVADA [Suspect]
     Dosage: UNK TO 17NOV08 UNK TO 11JUL09
     Route: 064
     Dates: end: 20090711
  6. ALBUTEROL [Concomitant]
  7. ARIPIPRAZOLE [Concomitant]
  8. PROPYLTHIOURACIL [Concomitant]

REACTIONS (1)
  - VENTRICULAR SEPTAL DEFECT [None]
